FAERS Safety Report 10344800 (Version 1)
Quarter: 2014Q3

REPORT INFORMATION
  Report Type: Spontaneous
  Country: US (occurrence: None)
  Receive Date: 20140723
  Receipt Date: 20140723
  Transmission Date: 20150326
  Serious: No
  Sender: FDA-Public Use
  Company Number: CC14-0526

PATIENT
  Age: 21 Year
  Sex: Female
  Weight: 52.16 kg

DRUGS (2)
  1. PRENATAL VITAMIN [Concomitant]
     Active Substance: VITAMINS
  2. METRONIDAZOLE VAGINAL GEL USP, 0.75% (TOLMAR INC) [Suspect]
     Active Substance: METRONIDAZOLE
     Indication: VAGINAL INFECTION
     Dosage: 1 APPLICATOR
     Dates: start: 20140407

REACTIONS (1)
  - Administration site reaction [None]

NARRATIVE: CASE EVENT DATE: 20140407
